FAERS Safety Report 10911135 (Version 1)
Quarter: 2015Q1

REPORT INFORMATION
  Report Type: Spontaneous
  Country: US (occurrence: US)
  Receive Date: 20150312
  Receipt Date: 20150312
  Transmission Date: 20150721
  Serious: No
  Sender: FDA-Public Use
  Company Number: US-009507513-1503USA005048

PATIENT
  Sex: Male

DRUGS (1)
  1. CLARITIN [Suspect]
     Active Substance: LORATADINE
     Indication: PAROSMIA
     Dosage: UNK, UNKNOWN
     Route: 048

REACTIONS (4)
  - Somnolence [Unknown]
  - Therapeutic response unexpected [Unknown]
  - Product use issue [Unknown]
  - Underdose [Unknown]
